FAERS Safety Report 8554169-8 (Version None)
Quarter: 2012Q3

REPORT INFORMATION
  Report Type: 
  Country: None (occurrence: None)
  Receive Date: 20120731
  Receipt Date: 20120726
  Transmission Date: 20120928
  Serious: Yes (Other)
  Sender: FDA-Public Use
  Company Number: PHEH2012US014753

PATIENT
  Sex: Female

DRUGS (6)
  1. GILENYA [Suspect]
     Indication: RELAPSING-REMITTING MULTIPLE SCLEROSIS
     Dosage: 0.5 MG, QD
     Route: 048
     Dates: start: 20120614
  2. FAMPRIDINE [Concomitant]
     Dosage: UNK UKN, UNK
  3. ASPIRIN [Concomitant]
     Dosage: UNK UKN, UNK
  4. BACLOFEN [Concomitant]
     Dosage: UNK UKN, UNK
  5. AMBIEN [Concomitant]
     Dosage: UNK UKN, UNK
  6. NEURONTIN [Concomitant]
     Dosage: UNK UKN, UNK

REACTIONS (3)
  - CYSTITIS [None]
  - KIDNEY INFECTION [None]
  - JOINT SWELLING [None]
